FAERS Safety Report 7451515-3 (Version None)
Quarter: 2011Q2

REPORT INFORMATION
  Report Type: 
  Country: None (occurrence: None)
  Receive Date: 20110502
  Receipt Date: 20110428
  Transmission Date: 20111010
  Serious: Yes (Other)
  Sender: FDA-Public Use
  Company Number: US-AMGEN-QUU406078

PATIENT
  Age: 2 Year
  Sex: Male

DRUGS (3)
  1. NPLATE [Suspect]
     Indication: IDIOPATHIC THROMBOCYTOPENIC PURPURA
     Dosage: 10 A?G/KG, UNK
     Dates: start: 20091012, end: 20091102
  2. IMMUNOGLOBULINS [Concomitant]
     Dosage: UNK UNK, UNK
     Route: 042
     Dates: start: 20091001
  3. NPLATE [Suspect]
     Dates: start: 20091012, end: 20091101

REACTIONS (3)
  - WISKOTT-ALDRICH SYNDROME [None]
  - DRUG INEFFECTIVE [None]
  - TRANSPLANT [None]
